FAERS Safety Report 15691026 (Version 1)
Quarter: 2018Q4

REPORT INFORMATION
  Report Type: Spontaneous
  Country: BR (occurrence: BR)
  Receive Date: 20181205
  Receipt Date: 20181205
  Transmission Date: 20190205
  Serious: Yes (Other)
  Sender: FDA-Public Use
  Company Number: BR-PFIZER INC-2018492294

PATIENT
  Age: 91 Year
  Sex: Female

DRUGS (1)
  1. XALATAN [Suspect]
     Active Substance: LATANOPROST
     Indication: GLAUCOMA

REACTIONS (8)
  - Diabetes mellitus [Not Recovered/Not Resolved]
  - Depression [Unknown]
  - Cataract [Unknown]
  - Senile dementia [Unknown]
  - Vitamin B12 deficiency [Unknown]
  - Eye pain [Unknown]
  - Somnolence [Unknown]
  - Memory impairment [Unknown]
